FAERS Safety Report 13701657 (Version 1)
Quarter: 2017Q2

REPORT INFORMATION
  Report Type: Spontaneous
  Country: US (occurrence: US)
  Receive Date: 20170629
  Receipt Date: 20170629
  Transmission Date: 20170830
  Serious: Yes (Other)
  Sender: FDA-Public Use
  Company Number: US-PFIZER INC-2017282081

PATIENT
  Age: 60 Year
  Sex: Male
  Weight: 95 kg

DRUGS (2)
  1. ADVIL PM [Suspect]
     Active Substance: DIPHENHYDRAMINE CITRATE\IBUPROFEN
     Indication: SLEEP DISORDER
     Dosage: 2 DF, SAMPLE PACK
     Dates: start: 20170624, end: 20170624
  2. ADVIL PM [Suspect]
     Active Substance: DIPHENHYDRAMINE CITRATE\IBUPROFEN
     Indication: PAIN

REACTIONS (11)
  - Hypersomnia [Recovering/Resolving]
  - Loss of control of legs [Recovering/Resolving]
  - Dry mouth [Recovering/Resolving]
  - Dysarthria [Recovering/Resolving]
  - Vision blurred [Recovering/Resolving]
  - Fatigue [Unknown]
  - Urinary incontinence [Recovering/Resolving]
  - Motor dysfunction [Unknown]
  - Cognitive disorder [Unknown]
  - Asthenopia [Unknown]
  - Dysstasia [Unknown]

NARRATIVE: CASE EVENT DATE: 20170624
